FAERS Safety Report 10071967 (Version 1)
Quarter: 2014Q2

REPORT INFORMATION
  Report Type: Spontaneous
  Country: BR (occurrence: BR)
  Receive Date: 20140411
  Receipt Date: 20140411
  Transmission Date: 20141212
  Serious: Yes (Other)
  Sender: FDA-Public Use
  Company Number: BR-BRISTOL-MYERS SQUIBB COMPANY-20597159

PATIENT
  Sex: 0

DRUGS (1)
  1. ORENCIA [Suspect]

REACTIONS (1)
  - Laryngeal oedema [Unknown]
